FAERS Safety Report 13046404 (Version 1)
Quarter: 2016Q4

REPORT INFORMATION
  Report Type: Report from Study
  Country: US (occurrence: US)
  Receive Date: 20161220
  Receipt Date: 20161220
  Transmission Date: 20170207
  Serious: Yes (Death)
  Sender: FDA-Public Use
  Company Number: PHEH2016US032990

PATIENT
  Sex: Male

DRUGS (3)
  1. TYKERB [Suspect]
     Active Substance: LAPATINIB DITOSYLATE
     Indication: METASTASES TO BONE
  2. TYKERB [Suspect]
     Active Substance: LAPATINIB DITOSYLATE
     Indication: METASTASIS
  3. TYKERB [Suspect]
     Active Substance: LAPATINIB DITOSYLATE
     Indication: ANAL CANCER
     Dosage: 250 MG, 5QD
     Route: 048

REACTIONS (2)
  - Product use issue [Unknown]
  - Death [Fatal]
